FAERS Safety Report 8206447-X (Version None)
Quarter: 2012Q1

REPORT INFORMATION
  Report Type: 
  Country: None (occurrence: None)
  Receive Date: 20120313
  Receipt Date: 20120310
  Transmission Date: 20120608
  Serious: Yes (Death, Hospitalization, Other)
  Sender: FDA-Public Use
  Company Number: PHHY2012GT021104

PATIENT
  Age: 85 Year
  Sex: Female

DRUGS (2)
  1. EXELON [Suspect]
     Indication: DEMENTIA ALZHEIMER'S TYPE
     Dosage: 4.6 MG/24 HOURS
     Route: 062
     Dates: start: 20101001
  2. CIRBAL [Concomitant]

REACTIONS (7)
  - CEREBROVASCULAR ACCIDENT [None]
  - INTESTINAL PERFORATION [None]
  - DEATH [None]
  - RENAL FAILURE [None]
  - HEAD INJURY [None]
  - ABDOMINAL PAIN [None]
  - FALL [None]
